FAERS Safety Report 5606197-X (Version None)
Quarter: 2008Q1

REPORT INFORMATION
  Report Type: 
  Country: None (occurrence: None)
  Receive Date: 20080129
  Receipt Date: 20070129
  Transmission Date: 20080703
  Serious: No
  Sender: FDA-Public Use
  Company Number: A0637483A

PATIENT
  Sex: Female

DRUGS (1)
  1. BUPROPION HCL [Suspect]
     Dates: start: 20070101

REACTIONS (3)
  - PANIC ATTACK [None]
  - PRURITUS [None]
  - PSYCHOSOMATIC DISEASE [None]
